FAERS Safety Report 10095336 (Version 1)
Quarter: 2014Q2

REPORT INFORMATION
  Report Type: Spontaneous
  Country: US (occurrence: US)
  Receive Date: 20140422
  Receipt Date: 20140422
  Transmission Date: 20141212
  Serious: Yes (Other)
  Sender: FDA-Public Use
  Company Number: US-B.I. PHARMACEUTICALS,INC./RIDGEFIELD-2014-BI-17733BP

PATIENT
  Age: 75 Year
  Sex: Male
  Weight: 63 kg

DRUGS (17)
  1. SPIRIVA [Suspect]
     Indication: PRODUCT USED FOR UNKNOWN INDICATION
     Dosage: 18 MCG
     Route: 055
  2. BREO ELLIPTA [Suspect]
     Indication: CHRONIC OBSTRUCTIVE PULMONARY DISEASE
     Dosage: 1 PUF
     Route: 055
     Dates: start: 20140211, end: 20140313
  3. BREO ELLIPTA [Suspect]
     Dosage: FORMULATION: INHALATION POWDER
     Route: 055
  4. DELTASONE [Suspect]
     Indication: PRODUCT USED FOR UNKNOWN INDICATION
     Dosage: 10 MG
     Route: 048
  5. SYMBICORT UNSPECIFIED INHALER DEVICE [Suspect]
     Indication: PRODUCT USED FOR UNKNOWN INDICATION
     Dosage: 4 PUF
     Route: 055
  6. MUCOMYST [Suspect]
     Indication: PRODUCT USED FOR UNKNOWN INDICATION
     Dosage: ROUTE: NEBULIZATION
     Route: 050
  7. PARACETAMOL [Concomitant]
     Route: 065
  8. SALBUTAMOL SULPHATE [Concomitant]
     Dosage: NEBULIZER
     Route: 065
  9. SALBUTAMOL SULPHATE [Concomitant]
     Dosage: INHALER
     Route: 065
  10. AMITRIPTYLLINE [Concomitant]
     Route: 065
  11. FRUSEMIDE [Concomitant]
     Route: 065
  12. GUAIPHENESIN [Concomitant]
     Route: 065
  13. NORCO [Concomitant]
     Route: 065
  14. NAPROXEN [Concomitant]
     Route: 065
  15. SODIUM RABEPRAZOLE [Concomitant]
     Route: 065
  16. SODIUM CHLORIDE [Concomitant]
     Route: 065
  17. METHOTREXATE [Concomitant]
     Route: 065

REACTIONS (17)
  - Lung neoplasm malignant [Unknown]
  - Squamous cell carcinoma [Unknown]
  - Spinal compression fracture [Unknown]
  - Osteoporosis [Unknown]
  - Anxiety [Recovered/Resolved]
  - Dyspnoea [Not Recovered/Not Resolved]
  - Back pain [Unknown]
  - Sputum discoloured [Unknown]
  - Productive cough [Unknown]
  - Hypoxia [Unknown]
  - Pneumonia [Unknown]
  - Pulmonary mass [Unknown]
  - Fungal infection [Unknown]
  - Musculoskeletal chest pain [Unknown]
  - Forced expiratory volume decreased [Unknown]
  - Chest pain [Unknown]
  - Vision blurred [Recovered/Resolved]
